FAERS Safety Report 5130867-3 (Version None)
Quarter: 2006Q4

REPORT INFORMATION
  Report Type: 
  Country: None (occurrence: None)
  Receive Date: 20061019
  Receipt Date: 20060123
  Transmission Date: 20070319
  Serious: Yes (Death)
  Sender: FDA-Public Use
  Company Number: US-SANOFI-SYNTHELABO-A03200600412

PATIENT
  Sex: Male
  Weight: 73.01 kg

DRUGS (11)
  1. PLAVIX [Suspect]
     Indication: DRUG USE FOR UNKNOWN INDICATION
     Dosage: UNK
     Route: 048
  2. NITROQUICK [Concomitant]
     Dosage: UNK
     Route: 060
  3. CELEBREX [Concomitant]
     Dosage: UNK
     Route: 048
  4. LASIX [Concomitant]
     Dosage: UNK
     Route: 048
  5. DIOVAN [Concomitant]
     Dosage: UNK
     Route: 048
  6. NOVOLOG [Concomitant]
     Dosage: UNK
     Route: 058
  7. ZOCOR [Concomitant]
     Dosage: UNK
     Route: 048
  8. LANTUS [Concomitant]
     Dosage: UNK
     Route: 048
  9. CYMBALTA [Concomitant]
     Dosage: UNK
     Route: 048
  10. ATIVAN [Concomitant]
     Dosage: UNK
     Route: 048
  11. ASPIRIN [Concomitant]
     Dosage: UNK
     Route: 048

REACTIONS (1)
  - DEATH [None]
